FAERS Safety Report 6979024-6 (Version None)
Quarter: 2010Q3

REPORT INFORMATION
  Report Type: 
  Country: None (occurrence: None)
  Receive Date: 20100824
  Receipt Date: 20100610
  Transmission Date: 20110219
  Serious: Yes (Other)
  Sender: FDA-Public Use
  Company Number: 309972

PATIENT

DRUGS (2)
  1. VICTOZA [Suspect]
     Indication: TYPE 2 DIABETES MELLITUS
     Dosage: SUBCUTANEOUS
     Route: 058
     Dates: start: 20100401, end: 20100601
  2. METFORMIN /0082702/ (METFORMIN HYDROCHLORIDE) [Concomitant]

REACTIONS (1)
  - PANCREATITIS [None]
